FAERS Safety Report 8126630-1 (Version None)
Quarter: 2012Q1

REPORT INFORMATION
  Report Type: 
  Country: None (occurrence: None)
  Receive Date: 20120210
  Receipt Date: 20120203
  Transmission Date: 20120608
  Serious: No
  Sender: FDA-Public Use
  Company Number: US-BIOGENIDEC-2011BI047488

PATIENT
  Age: 31 Year
  Sex: Female

DRUGS (1)
  1. TYSABRI [Suspect]
     Indication: MULTIPLE SCLEROSIS
     Route: 042
     Dates: start: 20110107

REACTIONS (6)
  - WOUND INFECTION [None]
  - LACERATION [None]
  - EAR INFECTION [None]
  - TONSILLITIS [None]
  - TONSILLECTOMY [None]
  - MALAISE [None]
